FAERS Safety Report 5216540-1 (Version None)
Quarter: 2007Q1

REPORT INFORMATION
  Report Type: 
  Country: None (occurrence: None)
  Receive Date: 20061130
  Receipt Date: 20060814
  Transmission Date: 20070707
  Serious: Yes (Hospitalization, Other)
  Sender: FDA-Public Use
  Company Number: US200608003637

PATIENT
  Sex: Female
  Weight: 52.2 kg

DRUGS (5)
  1. ZYPREXA [Suspect]
     Dates: start: 20010101, end: 20060101
  2. QUETIAPINE FUMARATE [Concomitant]
  3. PAROXETINE HYDROCHLORIDE [Concomitant]
  4. SERTRALINE [Concomitant]
  5. MEDROXYPROGESTERONE [Concomitant]

REACTIONS (2)
  - METABOLIC DISORDER [None]
  - PANCREATITIS [None]
